FAERS Safety Report 6473514-0 (Version None)
Quarter: 2009Q4

REPORT INFORMATION
  Report Type: 
  Country: None (occurrence: None)
  Receive Date: 20091204
  Receipt Date: 20081008
  Transmission Date: 20100525
  Serious: Yes (Other)
  Sender: FDA-Public Use
  Company Number: US-ELI_LILLY_AND_COMPANY-US200810001946

PATIENT
  Age: 37 Year
  Sex: Female

DRUGS (4)
  1. EVISTA [Suspect]
     Indication: OSTEOPOROSIS
     Dosage: 60 MG, DAILY (1/D)
     Route: 065
     Dates: start: 20080501, end: 20080901
  2. CLONOPIN [Concomitant]
     Dosage: 0.5 MG, QOD
     Route: 065
     Dates: start: 20030101
  3. TRAMADOL HCL [Concomitant]
     Indication: PAIN
     Dosage: 50 MG, 4/D
     Route: 065
  4. NAPROXEN [Concomitant]
     Dosage: 375 MG, OTHER
     Route: 065

REACTIONS (10)
  - BONE PAIN [None]
  - CRYING [None]
  - FEELING ABNORMAL [None]
  - HOT FLUSH [None]
  - JOINT CREPITATION [None]
  - MEMORY IMPAIRMENT [None]
  - MOOD SWINGS [None]
  - PAIN IN EXTREMITY [None]
  - SUICIDAL IDEATION [None]
  - VISUAL IMPAIRMENT [None]
